FAERS Safety Report 15535699 (Version 2)
Quarter: 2019Q1

REPORT INFORMATION
  Report Type: Spontaneous
  Country: US (occurrence: US)
  Receive Date: 20181022
  Receipt Date: 20190201
  Transmission Date: 20190417
  Serious: No
  Sender: FDA-Public Use
  Company Number: US-PFIZER INC-2017461535

PATIENT
  Age: 61 Year
  Sex: Female

DRUGS (2)
  1. IBRANCE [Suspect]
     Active Substance: PALBOCICLIB
     Indication: METASTASES TO LIVER
     Dosage: 125 MG DAILY FOR 21 DAYS THEN 7 DAYS BREAK
     Dates: start: 201708
  2. IBRANCE [Suspect]
     Active Substance: PALBOCICLIB
     Dosage: 100 MG, DAILY, FOR 21 DAYS THEN 7 DAY BREAK REPEAT
     Route: 048
     Dates: start: 201708

REACTIONS (2)
  - Cough [Unknown]
  - Epistaxis [Unknown]
